FAERS Safety Report 9444920 (Version 2)
Quarter: 2013Q3

REPORT INFORMATION
  Report Type: Spontaneous
  Country: GB (occurrence: GB)
  Receive Date: 20130807
  Receipt Date: 20130905
  Transmission Date: 20140515
  Serious: Yes (Other)
  Sender: FDA-Public Use
  Company Number: PHHY2013GB082712

PATIENT
  Age: 47 Year
  Sex: Male

DRUGS (7)
  1. TRIAMCINOLONE [Suspect]
     Indication: TENDON RUPTURE
     Dosage: 80 MG
     Route: 014
  2. LOPINAVIR + RITONAVIR [Interacting]
     Indication: HIV INFECTION
     Dosage: 1 DF, BID
  3. BUPIVACAINE [Concomitant]
     Dosage: 4 ML
  4. LIDOCAINE [Concomitant]
     Dosage: 4 ML
  5. HYDROCORTISONE [Concomitant]
  6. LANTUS [Concomitant]
     Indication: TYPE 2 DIABETES MELLITUS
  7. NOVORAPID [Concomitant]
     Indication: TYPE 2 DIABETES MELLITUS

REACTIONS (6)
  - Malaise [Recovered/Resolved]
  - Blood sodium decreased [Unknown]
  - Weight increased [Unknown]
  - Blood glucose increased [Unknown]
  - Adrenal suppression [Recovered/Resolved]
  - Drug interaction [Unknown]
